FAERS Safety Report 12774918 (Version 7)
Quarter: 2018Q3

REPORT INFORMATION
  Report Type: Spontaneous
  Country: DE (occurrence: DE)
  Receive Date: 20160923
  Receipt Date: 20180927
  Transmission Date: 20181010
  Serious: Yes (Life-Threatening, Hospitalization, Disabling, Other)
  Sender: FDA-Public Use
  Company Number: DE-009507513-1609DEU009649

PATIENT
  Age: 39 Year
  Sex: Female
  Weight: 76 kg

DRUGS (6)
  1. IBUPROFEN. [Concomitant]
     Active Substance: IBUPROFEN
     Dosage: 600 MG, UNK
  2. NUVARING [Suspect]
     Active Substance: ETHINYL ESTRADIOL\ETONOGESTREL
     Indication: CONTRACEPTION
     Dosage: ACCORDING TO THE USE INSTRUCTIONS
     Route: 067
     Dates: start: 20160201, end: 201608
  3. FOLSAN [Concomitant]
     Active Substance: FOLIC ACID
     Dosage: 5 MG, QD
  4. PANTOPRAZOLE [Concomitant]
     Active Substance: PANTOPRAZOLE
     Dosage: 20 MG, QD
  5. TRAMADOL HYDROCHLORIDE. [Concomitant]
     Active Substance: TRAMADOL HYDROCHLORIDE
     Dosage: 100 MG, TID
  6. XARELTO [Concomitant]
     Active Substance: RIVAROXABAN
     Dosage: 20 MG, QD
     Route: 048

REACTIONS (9)
  - Pleural effusion [Recovering/Resolving]
  - Nausea [Unknown]
  - Folate deficiency [Recovering/Resolving]
  - Headache [Unknown]
  - Pneumonia [Recovering/Resolving]
  - Pulmonary embolism [Recovering/Resolving]
  - Faecaloma [Unknown]
  - Musculoskeletal discomfort [Unknown]
  - Pneumonitis [Unknown]

NARRATIVE: CASE EVENT DATE: 2016
